FAERS Safety Report 15676376 (Version 2)
Quarter: 2018Q4

REPORT INFORMATION
  Report Type: Spontaneous
  Country: FR (occurrence: FR)
  Receive Date: 20181130
  Receipt Date: 20181214
  Transmission Date: 20190205
  Serious: Yes (Other)
  Sender: FDA-Public Use
  Company Number: FR-SA-2018SA157614

PATIENT
  Age: 44 Year
  Sex: Male

DRUGS (1)
  1. CAPRELSA [Suspect]
     Active Substance: VANDETANIB

REACTIONS (1)
  - Cardiotoxicity [Unknown]
